FAERS Safety Report 6614037-5 (Version None)
Quarter: 2010Q1

REPORT INFORMATION
  Report Type: 
  Country: None (occurrence: None)
  Receive Date: 20100303
  Receipt Date: 20100303
  Transmission Date: 20100710
  Serious: Yes (Hospitalization)
  Sender: FDA-Public Use
  Company Number: None

PATIENT
  Age: 69 Year
  Sex: Female
  Weight: 66.3159 kg

DRUGS (14)
  1. HYDROXYCHLOROQUINE PO [Suspect]
     Indication: OVARIAN CANCER
     Dosage: HYDROXYCHLOROQUINE D2-21
     Dates: start: 20100218, end: 20100227
  2. VORINOSTAT PO [Suspect]
     Dosage: VORINOSTAT300MG PO D1-21
     Dates: start: 20100217, end: 20100227
  3. METFORMIN HYDROCHLORIDE [Concomitant]
  4. ACTOS [Suspect]
  5. ENALAPRIL MALEATE [Concomitant]
  6. HYDROCHLOROTHIAZIDE [Concomitant]
  7. METOPROLOL TARTRATE [Concomitant]
  8. RANITADINE [Concomitant]
  9. PRAVACHOL [Concomitant]
  10. HYDROCODONE [Concomitant]
  11. PROMETHAZINE [Concomitant]
  12. ZOFRAN [Concomitant]
  13. REGALN [Concomitant]
  14. SENOKOT [Concomitant]

REACTIONS (3)
  - HAEMOGLOBIN DECREASED [None]
  - PLATELET COUNT DECREASED [None]
  - RECTAL HAEMORRHAGE [None]
